FAERS Safety Report 6972223-9 (Version None)
Quarter: 2010Q3

REPORT INFORMATION
  Report Type: 
  Country: None (occurrence: None)
  Receive Date: 20100909
  Receipt Date: 20100825
  Transmission Date: 20110219
  Serious: Yes (Hospitalization, Other)
  Sender: FDA-Public Use
  Company Number: US-PAR PHARMACEUTICAL, INC-2010SCPR002034

PATIENT
  Age: 18 Month
  Sex: Female

DRUGS (3)
  1. PROPRANOLOL HYDROCHLORIDE [Suspect]
     Indication: HAEMANGIOMA
     Dosage: 0.5 MG/KG/D DIVIDED AND GIVEN TWICE DAILY
     Route: 065
  2. PROPRANOLOL HYDROCHLORIDE [Suspect]
     Dosage: 1 MG/KG/D
     Route: 065
  3. PROPRANOLOL HYDROCHLORIDE [Suspect]
     Dosage: 1.25 MG/KG/D DIVIDED AND GIVEN TWICE DAILY

REACTIONS (9)
  - COLD SWEAT [None]
  - CONVULSION [None]
  - HYPOGLYCAEMIA [None]
  - HYPOTHERMIA [None]
  - IDIOSYNCRATIC DRUG REACTION [None]
  - NAUSEA [None]
  - PYREXIA [None]
  - UNRESPONSIVE TO STIMULI [None]
  - VOMITING [None]
